FAERS Safety Report 6949143-9 (Version None)
Quarter: 2010Q3

REPORT INFORMATION
  Report Type: 
  Country: None (occurrence: None)
  Receive Date: 20100828
  Receipt Date: 20091202
  Transmission Date: 20110219
  Serious: No
  Sender: FDA-Public Use
  Company Number: US-ABBOTT-09P-163-0613405-00

PATIENT
  Sex: Female
  Weight: 63.56 kg

DRUGS (3)
  1. NIASPAN [Suspect]
     Indication: HIGH DENSITY LIPOPROTEIN DECREASED
     Dates: start: 20091001
  2. PEPCID [Suspect]
     Indication: THROAT IRRITATION
  3. PEPCID [Suspect]
     Indication: CHEST PAIN

REACTIONS (2)
  - CHEST PAIN [None]
  - THROAT IRRITATION [None]
